FAERS Safety Report 6283057-5 (Version None)
Quarter: 2009Q3

REPORT INFORMATION
  Report Type: 
  Country: None (occurrence: None)
  Receive Date: 20090724
  Receipt Date: 20090714
  Transmission Date: 20100115
  Serious: Yes (Other)
  Sender: FDA-Public Use
  Company Number: US-PFIZER INC-2009192623

PATIENT
  Sex: Female
  Weight: 72.562 kg

DRUGS (2)
  1. XALATAN [Suspect]
     Indication: KERATOCONJUNCTIVITIS SICCA
     Dosage: UNK
  2. ALL OTHER THERAPEUTIC PRODUCTS [Concomitant]
     Dosage: UNK

REACTIONS (2)
  - CATARACT OPERATION [None]
  - KNEE ARTHROPLASTY [None]
